FAERS Safety Report 16443279 (Version 2)
Quarter: 2019Q2

REPORT INFORMATION
  Report Type: Report from Study
  Country: None (occurrence: AU)
  Receive Date: 20190618
  Receipt Date: 20190618
  Transmission Date: 20190711
  Serious: Yes (Other)
  Sender: FDA-Public Use
  Company Number: AU-ABBVIE-19K-008-2817942-00

PATIENT
  Sex: Male

DRUGS (1)
  1. HUMIRA [Suspect]
     Active Substance: ADALIMUMAB
     Indication: RHEUMATOID ARTHRITIS
     Route: 058

REACTIONS (7)
  - Lung neoplasm [Unknown]
  - Dyspnoea [Unknown]
  - Tendon rupture [Unknown]
  - Oral neoplasm [Recovered/Resolved]
  - Pneumonia [Recovering/Resolving]
  - Muscle rupture [Unknown]
  - Neoplasm malignant [Unknown]
